FAERS Safety Report 17065602 (Version 5)
Quarter: 2020Q4

REPORT INFORMATION
  Report Type: Other
  Country: GB (occurrence: GB)
  Receive Date: 20191122
  Receipt Date: 20201211
  Transmission Date: 20210113
  Serious: Yes (Hospitalization)
  Sender: FDA-Public Use
  Company Number: GB-ROCHE-2469302

PATIENT
  Age: 63 Year
  Sex: Female

DRUGS (66)
  1. TRASTUZUMAB EMTANSINE [Suspect]
     Active Substance: ADO-TRASTUZUMAB EMTANSINE
     Indication: BREAST CANCER METASTATIC
  2. LETROZOLE. [Suspect]
     Active Substance: LETROZOLE
     Indication: BREAST CANCER METASTATIC
     Route: 048
     Dates: start: 20180119, end: 20180126
  3. OMEPRAZOLE. [Concomitant]
     Active Substance: OMEPRAZOLE
     Dates: start: 20091014
  4. CHLORPHENAMINE [Concomitant]
     Active Substance: CHLORPHENIRAMINE MALEATE
     Route: 042
     Dates: start: 20180202, end: 20180518
  5. FLUCONAZOLE. [Concomitant]
     Active Substance: FLUCONAZOLE
     Route: 048
     Dates: start: 20180125, end: 20180128
  6. GENTAMYCIN [Concomitant]
     Active Substance: GENTAMICIN
  7. RANITIDINE. [Concomitant]
     Active Substance: RANITIDINE
  8. CLEXANE [Concomitant]
     Active Substance: ENOXAPARIN SODIUM
  9. FEXOFENADINE [Concomitant]
     Active Substance: FEXOFENADINE HYDROCHLORIDE
  10. FERROUS FUMARATE [Concomitant]
     Active Substance: FERROUS FUMARATE
  11. ZOLEDRONIC ACID [Concomitant]
     Active Substance: ZOLEDRONIC ACID
     Dates: start: 20181019
  12. CHIROCAINE [Concomitant]
     Active Substance: LEVOBUPIVACAINE HYDROCHLORIDE
  13. OXYGEN. [Concomitant]
     Active Substance: OXYGEN
  14. PROPOFOL. [Concomitant]
     Active Substance: PROPOFOL
  15. AMLODIPINE [Concomitant]
     Active Substance: AMLODIPINE BESYLATE
     Route: 048
     Dates: end: 20180301
  16. QUININE SULPHATE [Concomitant]
     Active Substance: QUININE SULFATE
     Route: 048
     Dates: start: 20040219, end: 20180225
  17. FOLIC ACID. [Concomitant]
     Active Substance: FOLIC ACID
     Dates: start: 20030207
  18. RANITIDINE. [Concomitant]
     Active Substance: RANITIDINE
     Route: 042
     Dates: start: 20180202, end: 20180518
  19. METOCLOPRAMIDE. [Concomitant]
     Active Substance: METOCLOPRAMIDE
     Dosage: PRN (AS?NEEDED)
     Route: 048
     Dates: start: 20180202, end: 20180518
  20. DERMOL [Concomitant]
     Active Substance: BENZALKONIUM CHLORIDE\CHLORHEXIDINE HYDROCHLORIDE\ISOPROPYL MYRISTATE\PARAFFIN
  21. ENOXAPARIN [Concomitant]
     Active Substance: ENOXAPARIN
  22. CLARITHROMYCIN. [Concomitant]
     Active Substance: CLARITHROMYCIN
  23. DOUBLEBASE [Concomitant]
     Active Substance: ISOPROPYL MYRISTATE\PARAFFIN
  24. TRASTUZUMAB. [Suspect]
     Active Substance: TRASTUZUMAB
     Indication: BREAST CANCER METASTATIC
     Route: 058
     Dates: start: 20180202, end: 20180827
  25. TRASTUZUMAB. [Suspect]
     Active Substance: TRASTUZUMAB
     Indication: BREAST CANCER
  26. GLUCOSE [Concomitant]
     Active Substance: DEXTROSE
  27. TERBUTALINE [Concomitant]
     Active Substance: TERBUTALINE
     Dates: start: 20030108
  28. ADCAL-D3 [Concomitant]
     Active Substance: CALCIUM CARBONATE\CHOLECALCIFEROL
     Route: 048
     Dates: start: 20140127
  29. DEXAMETHASONE. [Concomitant]
     Active Substance: DEXAMETHASONE
     Route: 042
     Dates: start: 20180202, end: 20180518
  30. DOUBLEBASE [Concomitant]
     Active Substance: ISOPROPYL MYRISTATE\PARAFFIN
  31. SILVER NITRATE. [Concomitant]
     Active Substance: SILVER NITRATE
  32. AQUACEL [Concomitant]
     Active Substance: CARBOXYMETHYLCELLULOSE SODIUM
  33. MORPHINE [Concomitant]
     Active Substance: MORPHINE
  34. TRASTUZUMAB EMTANSINE [Suspect]
     Active Substance: ADO-TRASTUZUMAB EMTANSINE
     Indication: BREAST CANCER
     Route: 042
     Dates: start: 20181019, end: 20190927
  35. OXYCODONE [Concomitant]
     Active Substance: OXYCODONE
     Dates: start: 20180916, end: 20181002
  36. ONDANSETRON [Concomitant]
     Active Substance: ONDANSETRON
  37. TRANEXAMIC ACID. [Concomitant]
     Active Substance: TRANEXAMIC ACID
  38. TRIMETHOPRIM. [Concomitant]
     Active Substance: TRIMETHOPRIM
  39. DOXAZOSIN [Concomitant]
     Active Substance: DOXAZOSIN MESYLATE
     Route: 048
     Dates: start: 20040816
  40. HYDROXOCOBALAMIN [Concomitant]
     Active Substance: HYDROXOCOBALAMIN
     Dosage: HYDROXOCOBALAMIN?1MG/1ML
     Route: 042
     Dates: start: 20020115
  41. BENZYDAMINE [Concomitant]
     Active Substance: BENZYDAMINE
     Dates: start: 20180414
  42. PARACETAMOL [Concomitant]
     Active Substance: ACETAMINOPHEN
  43. EUMOVATE [Concomitant]
     Active Substance: CLOBETASONE BUTYRATE
  44. METRONIDAZOLE. [Concomitant]
     Active Substance: METRONIDAZOLE
  45. LETROZOLE. [Suspect]
     Active Substance: LETROZOLE
     Indication: BREAST CANCER
     Route: 048
     Dates: start: 20180525, end: 20181011
  46. EXEMESTANE. [Suspect]
     Active Substance: EXEMESTANE
     Indication: BREAST CANCER METASTATIC
     Route: 048
     Dates: start: 20200228
  47. COCODAMOL [Concomitant]
     Active Substance: ACETAMINOPHEN\CODEINE PHOSPHATE
     Dosage: PRN (AS?NEEDED)
     Route: 048
     Dates: start: 20180302
  48. CLOTRIMAZOLE. [Concomitant]
     Active Substance: CLOTRIMAZOLE
     Route: 061
  49. ONDANSETRON [Concomitant]
     Active Substance: ONDANSETRON
     Indication: BONE PAIN
     Dates: start: 20181216
  50. HEPARIN SODIUM. [Concomitant]
     Active Substance: HEPARIN SODIUM
  51. PLASMA-LYTE 148 [Concomitant]
     Active Substance: MAGNESIUM CHLORIDE\POTASSIUM CHLORIDE\SODIUM ACETATE\SODIUM CHLORIDE\SODIUM GLUCONATE
  52. SUGAMMADEX [Concomitant]
     Active Substance: SUGAMMADEX
  53. PENTASA [Concomitant]
     Active Substance: MESALAMINE
     Dates: start: 20131217, end: 20180730
  54. PIRITON [Concomitant]
     Active Substance: CHLORPHENIRAMINE MALEATE
     Dosage: PRN (AS?NEEDED)
     Route: 048
     Dates: start: 20180125
  55. MAGNESIUM ASPARTATE [Concomitant]
     Active Substance: MAGNESIUM ASPARTATE
  56. SANDO K [Concomitant]
  57. TEICOPLANIN [Concomitant]
     Active Substance: TEICOPLANIN
  58. DOXYCYCLINE. [Concomitant]
     Active Substance: DOXYCYCLINE
  59. CYCLIZINE [Concomitant]
     Active Substance: CYCLIZINE
  60. PACLITAXEL. [Suspect]
     Active Substance: PACLITAXEL
     Indication: BREAST CANCER
     Route: 042
     Dates: start: 20180202, end: 20180518
  61. PACLITAXEL. [Suspect]
     Active Substance: PACLITAXEL
     Indication: BREAST CANCER METASTATIC
  62. BENDROFLUMETHIAZIDE [Concomitant]
     Active Substance: BENDROFLUMETHIAZIDE
     Route: 048
     Dates: start: 20030114
  63. ZEROBASE [Concomitant]
     Active Substance: MINERAL OIL\PARAFFIN
     Indication: DRY SKIN
     Dosage: PRN (AS?NEEDED)
  64. VANCOMYCIN [Concomitant]
     Active Substance: VANCOMYCIN
  65. NACL [Concomitant]
     Active Substance: SODIUM CHLORIDE
  66. COLECALCIFEROL [Concomitant]
     Active Substance: CHOLECALCIFEROL
     Route: 048
     Dates: start: 20180926

REACTIONS (2)
  - Gastrointestinal haemorrhage [Recovered/Resolved]
  - Stoma site haemorrhage [Recovered/Resolved]

NARRATIVE: CASE EVENT DATE: 20190417
